FAERS Safety Report 12776834 (Version 6)
Quarter: 2018Q4

REPORT INFORMATION
  Report Type: Report from Study
  Country: FR (occurrence: FR)
  Receive Date: 20160923
  Receipt Date: 20181026
  Transmission Date: 20190204
  Serious: Yes (Death, Hospitalization, Other)
  Sender: FDA-Public Use
  Company Number: PHHY2016FR128258

PATIENT
  Age: 63 Year
  Sex: Male

DRUGS (16)
  1. MYFORTIC [Suspect]
     Active Substance: MYCOPHENOLATE SODIUM
     Indication: IMMUNOSUPPRESSANT DRUG THERAPY
     Dosage: 360 MG, BID
     Route: 048
     Dates: start: 20130403
  2. MYFORTIC [Suspect]
     Active Substance: MYCOPHENOLATE SODIUM
     Dosage: 1440 MG, QD
     Route: 065
     Dates: start: 20130710
  3. CERTICAN [Suspect]
     Active Substance: EVEROLIMUS
     Indication: LIVER TRANSPLANT
     Dosage: 1 MG, BID
     Route: 048
     Dates: start: 20130418
  4. CERTICAN [Suspect]
     Active Substance: EVEROLIMUS
     Dosage: 3.25 MG, QD
     Route: 065
     Dates: start: 20140402, end: 20160621
  5. MYFORTIC [Suspect]
     Active Substance: MYCOPHENOLATE SODIUM
     Dosage: 720 MG, QD
     Route: 065
     Dates: start: 20161109
  6. PROGRAF [Concomitant]
     Active Substance: TACROLIMUS\TACROLIMUS ANHYDROUS
     Indication: IMMUNOSUPPRESSANT DRUG THERAPY
     Dosage: 3 MG, QD
     Route: 065
     Dates: start: 20140401
  7. CERTICAN [Suspect]
     Active Substance: EVEROLIMUS
     Indication: IMMUNOSUPPRESSANT DRUG THERAPY
     Dosage: 3 MG, QD
     Route: 065
     Dates: start: 20130815, end: 20131126
  8. CERTICAN [Suspect]
     Active Substance: EVEROLIMUS
     Dosage: 3.25 MG, QD
     Route: 065
     Dates: start: 20161115, end: 20161117
  9. CORTANCYL [Concomitant]
     Active Substance: PREDNISONE
     Indication: IMMUNOSUPPRESSANT DRUG THERAPY
     Dosage: 2 MG, QD
     Route: 065
     Dates: start: 20130911, end: 20131126
  10. CERTICAN [Suspect]
     Active Substance: EVEROLIMUS
     Dosage: 2 MG, QD
     Route: 065
     Dates: start: 20160928, end: 20161025
  11. INSULIN [Concomitant]
     Active Substance: INSULIN NOS
     Indication: DIABETES MELLITUS
     Dosage: UNK
     Route: 065
  12. CERTICAN [Suspect]
     Active Substance: EVEROLIMUS
     Dosage: 2.5 MG, QD
     Route: 065
     Dates: start: 20160622, end: 20160927
  13. CERTICAN [Suspect]
     Active Substance: EVEROLIMUS
     Dosage: 3.5 MG, QD
     Route: 065
     Dates: start: 20131127, end: 20140401
  14. CERTICAN [Suspect]
     Active Substance: EVEROLIMUS
     Dosage: 2 MG, QD
     Route: 065
     Dates: start: 20170321
  15. MYFORTIC [Suspect]
     Active Substance: MYCOPHENOLATE SODIUM
     Indication: LIVER TRANSPLANT
     Dosage: 720 MG, BID
     Route: 048
     Dates: start: 20130325
  16. MYFORTIC [Suspect]
     Active Substance: MYCOPHENOLATE SODIUM
     Dosage: 720 MG, QD
     Route: 065
     Dates: start: 20160928, end: 20161025

REACTIONS (10)
  - Postoperative respiratory failure [Recovering/Resolving]
  - Arterial disorder [Not Recovered/Not Resolved]
  - Swelling face [Recovered/Resolved]
  - Squamous cell carcinoma [Fatal]
  - Bronchopneumopathy [Recovered/Resolved]
  - Pyrexia [Recovered/Resolved]
  - Anaemia [Unknown]
  - Pulmonary mass [Unknown]
  - Proteinuria [Not Recovered/Not Resolved]
  - Bronchitis [Recovered/Resolved]

NARRATIVE: CASE EVENT DATE: 20151027
